FAERS Safety Report 4460411-5 (Version None)
Quarter: 2004Q3

REPORT INFORMATION
  Report Type: 
  Country: None (occurrence: None)
  Receive Date: 20040928
  Receipt Date: 20040528
  Transmission Date: 20050211
  Serious: No
  Sender: FDA-Public Use
  Company Number: US-GLAXOSMITHKLINE-A0512629A

PATIENT
  Age: 55 Year
  Sex: Male

DRUGS (6)
  1. SEREVENT [Suspect]
     Indication: ILL-DEFINED DISORDER
     Dosage: 50MCG TWICE PER DAY
     Route: 055
  2. DURAGESIC [Concomitant]
  3. ZANAFLEX [Concomitant]
  4. ATIVAN [Concomitant]
  5. CLONIDINE HCL [Concomitant]
  6. IMITREX [Concomitant]

REACTIONS (2)
  - DRUG INEFFECTIVE [None]
  - PHARMACEUTICAL PRODUCT COMPLAINT [None]
